FAERS Safety Report 15115022 (Version 3)
Quarter: 2018Q3

REPORT INFORMATION
  Report Type: Report from Study
  Country: GB (occurrence: GB)
  Receive Date: 20180706
  Receipt Date: 20180929
  Transmission Date: 20181010
  Serious: Yes (Other)
  Sender: FDA-Public Use
  Company Number: GB-BRISTOL-MYERS SQUIBB COMPANY-BMS-2018-038291

PATIENT
  Age: 62 Year
  Sex: Female
  Weight: 81 kg

DRUGS (1)
  1. NIVOLUMAB [Suspect]
     Active Substance: NIVOLUMAB
     Indication: ADENOCARCINOMA GASTRIC
     Dosage: 240 MG, Q2WK
     Route: 042
     Dates: start: 20180405, end: 20180531

REACTIONS (7)
  - Autoimmune haemolytic anaemia [Unknown]
  - Blood bilirubin increased [Recovered/Resolved]
  - Ear infection [Recovered/Resolved]
  - Haemolytic anaemia [Recovered/Resolved]
  - Pneumonitis [Recovered/Resolved]
  - Urinary tract infection [Recovered/Resolved]
  - General physical health deterioration [Recovered/Resolved]

NARRATIVE: CASE EVENT DATE: 20180511
